FAERS Safety Report 20008939 (Version 2)
Quarter: 2021Q4

REPORT INFORMATION
  Report Type: Spontaneous
  Country: JP (occurrence: JP)
  Receive Date: 20211028
  Receipt Date: 20211102
  Transmission Date: 20220303
  Serious: Yes (Other)
  Sender: FDA-Public Use
  Company Number: JP-TEVA-2021-JP-1968976

PATIENT
  Age: 40 Year
  Sex: Male

DRUGS (3)
  1. OFLOXACIN [Suspect]
     Active Substance: OFLOXACIN
     Indication: Otitis externa
     Route: 065
  2. CEFDITOREN PIVOXIL [Concomitant]
     Active Substance: CEFDITOREN PIVOXIL
     Indication: Otitis externa
     Dosage: 3 TIMES A DAY
     Route: 065
  3. GARENOXACIN [Concomitant]
     Active Substance: GARENOXACIN
     Indication: Otitis externa
     Route: 065

REACTIONS (3)
  - Ear infection fungal [Recovered/Resolved]
  - Candida infection [Recovered/Resolved]
  - Malassezia infection [Recovered/Resolved]
